FAERS Safety Report 24428790 (Version 3)
Quarter: 2024Q4

REPORT INFORMATION
  Report Type: Report from Study
  Country: KR (occurrence: KR)
  Receive Date: 20241011
  Receipt Date: 20241101
  Transmission Date: 20250115
  Serious: Yes (Death, Hospitalization, Other)
  Sender: AMGEN
  Company Number: KR-AMGEN-KORNI2024201218

PATIENT
  Age: 72 Year
  Sex: Male

DRUGS (5)
  1. TARLATAMAB [Suspect]
     Active Substance: TARLATAMAB
     Indication: Small cell lung cancer
     Dosage: 1 MILLIGRAM (ONCE)
     Route: 042
     Dates: start: 20241002
  2. TARLATAMAB [Suspect]
     Active Substance: TARLATAMAB
     Dosage: UNK
     Route: 042
     Dates: end: 20241002
  3. ASPIRIN [Concomitant]
     Active Substance: ASPIRIN
     Dosage: UNK
  4. ASPIRIN [Concomitant]
     Active Substance: ASPIRIN
     Dosage: UNK
  5. PALLADIUM [Concomitant]
     Active Substance: PALLADIUM
     Indication: Radiation pneumonitis
     Dosage: 10 MILLIGRAM, QD

REACTIONS (3)
  - Cytokine release syndrome [Fatal]
  - Tumour lysis syndrome [Fatal]
  - Immune effector cell-associated neurotoxicity syndrome [Fatal]

NARRATIVE: CASE EVENT DATE: 20241002
